FAERS Safety Report 25885786 (Version 1)
Quarter: 2025Q4

REPORT INFORMATION
  Report Type: Spontaneous
  Country: US (occurrence: US)
  Receive Date: 20251006
  Receipt Date: 20251006
  Transmission Date: 20260117
  Serious: No
  Sender: GLAXOSMITHKLINE
  Company Number: US-GSK-US2025AMR117825

PATIENT

DRUGS (4)
  1. NUCALA [Suspect]
     Active Substance: MEPOLIZUMAB
     Indication: Asthma
     Dosage: UNK
  2. NUCALA [Suspect]
     Active Substance: MEPOLIZUMAB
     Indication: Chronic obstructive pulmonary disease
  3. NUCALA [Suspect]
     Active Substance: MEPOLIZUMAB
     Indication: Bronchitis chronic
  4. NUCALA [Suspect]
     Active Substance: MEPOLIZUMAB
     Indication: Polyp

REACTIONS (1)
  - Product dose omission issue [Unknown]
